FAERS Safety Report 8300121-7 (Version None)
Quarter: 2012Q2

REPORT INFORMATION
  Report Type: 
  Country: None (occurrence: None)
  Receive Date: 20120420
  Receipt Date: 20120417
  Transmission Date: 20120825
  Serious: Yes (Other)
  Sender: FDA-Public Use
  Company Number: US-PFIZER INC-2012095487

PATIENT
  Sex: Female
  Weight: 61.3 kg

DRUGS (4)
  1. LANTUS [Concomitant]
     Indication: DIABETES MELLITUS
     Dosage: UNK
  2. NOVOLOG [Concomitant]
     Indication: DIABETES MELLITUS
     Dosage: UNK
  3. NITROSTAT [Suspect]
     Indication: CHEST PAIN
     Dosage: UNK, AS NEEDED
     Route: 048
  4. AVONEX [Concomitant]
     Indication: MULTIPLE SCLEROSIS
     Dosage: UNK

REACTIONS (4)
  - CARDIAC DISORDER [None]
  - BLOOD CHOLESTEROL INCREASED [None]
  - ABDOMINAL PAIN UPPER [None]
  - DYSPEPSIA [None]
